FAERS Safety Report 6770340-X (Version None)
Quarter: 2010Q2

REPORT INFORMATION
  Report Type: 
  Country: None (occurrence: None)
  Receive Date: 20100615
  Receipt Date: 20100602
  Transmission Date: 20101027
  Serious: Yes (Hospitalization)
  Sender: FDA-Public Use
  Company Number: BR-ELI_LILLY_AND_COMPANY-BR201004006861

PATIENT
  Sex: Female
  Weight: 62 kg

DRUGS (7)
  1. FORTEO [Suspect]
     Indication: OSTEOPOROSIS
     Dosage: UNK, DAILY (1/D)
     Route: 058
  2. BEROTEC [Concomitant]
     Dosage: UNK, AS NEEDED
  3. AEROLIN [Concomitant]
     Dosage: UNK, AS NEEDED
  4. BUSONID [Concomitant]
     Dosage: UNK, 2/D
  5. DIOSMIN W/HESPERIDIN [Concomitant]
     Dosage: UNK, DAILY (1/D)
  6. OLCADIL [Concomitant]
     Dosage: UNK, EACH EVENING
  7. CORTICOSTEROIDS [Concomitant]

REACTIONS (2)
  - FRACTURE [None]
  - KYPHOSIS [None]
